FAERS Safety Report 4947080-2 (Version None)
Quarter: 2006Q1

REPORT INFORMATION
  Report Type: 
  Country: None (occurrence: None)
  Receive Date: 20060317
  Receipt Date: 20060309
  Transmission Date: 20060701
  Serious: Yes (Hospitalization)
  Sender: FDA-Public Use
  Company Number: 2006PK00481

PATIENT
  Age: 28 Year
  Sex: Female
  Weight: 62 kg

DRUGS (12)
  1. OMEPRAZOLE [Suspect]
     Route: 048
     Dates: start: 20051103, end: 20051116
  2. NOVANTRONE [Suspect]
     Route: 042
     Dates: start: 20051025, end: 20051025
  3. TRANSIPEG [Concomitant]
     Route: 048
  4. MEPHADOLOR [Concomitant]
     Route: 048
  5. VITARUBIN [Concomitant]
     Route: 058
  6. AXURA [Concomitant]
     Route: 048
  7. ACIDUM FOLICUM [Concomitant]
     Route: 048
  8. FRAGMIN [Concomitant]
     Route: 058
  9. KALZIUM D3 [Concomitant]
     Route: 048
  10. DUPHALAC [Concomitant]
     Route: 048
  11. ORAL CONTRACEPTIVE [Concomitant]
     Route: 048
  12. RIVOTRIL [Concomitant]
     Route: 048

REACTIONS (5)
  - C-REACTIVE PROTEIN INCREASED [None]
  - CHILLS [None]
  - HEPATITIS TOXIC [None]
  - HEPATOCELLULAR DAMAGE [None]
  - PYREXIA [None]
